FAERS Safety Report 25632402 (Version 2)
Quarter: 2025Q3

REPORT INFORMATION
  Report Type: Spontaneous
  Country: US (occurrence: US)
  Receive Date: 20250801
  Receipt Date: 20250912
  Transmission Date: 20251021
  Serious: Yes (Other)
  Sender: Kenvue
  Company Number: US-KENVUE-20250709719

PATIENT
  Sex: Female

DRUGS (1)
  1. TYLENOL EXTRA STRENGTH [Suspect]
     Active Substance: ACETAMINOPHEN
     Indication: Joint swelling
     Dosage: 2 DOSAGE FORM, ONCE IN A WEEK
     Route: 048

REACTIONS (3)
  - Foreign body in throat [Recovered/Resolved]
  - Product coating issue [Unknown]
  - Drug ineffective [Unknown]
